FAERS Safety Report 15292172 (Version 1)
Quarter: 2018Q3

REPORT INFORMATION
  Report Type: Spontaneous
  Country: US (occurrence: US)
  Receive Date: 20180806
  Receipt Date: 20180806
  Transmission Date: 20181010
  Serious: Yes (Other)
  Sender: FDA-Public Use
  Company Number: None

PATIENT
  Age: 27 Year
  Sex: Female
  Weight: 45.45 kg

DRUGS (5)
  1. VYFEMLA [Concomitant]
     Active Substance: ETHINYL ESTRADIOL\NORETHINDRONE
  2. VITAMIN B12 [Concomitant]
     Active Substance: CYANOCOBALAMIN
  3. CIPROFLOXACIN HCL 500 MG TAB [Suspect]
     Active Substance: CIPROFLOXACIN HYDROCHLORIDE
     Indication: GASTROINTESTINAL BACTERIAL OVERGROWTH
     Dosage: ?          QUANTITY:1 TABLET(S);?
     Route: 048
     Dates: start: 20180602, end: 20180611
  4. VITAMIN C [Concomitant]
     Active Substance: ASCORBIC ACID
  5. TRI?LO SPRINTEC [Concomitant]
     Active Substance: ETHINYL ESTRADIOL\NORGESTIMATE

REACTIONS (17)
  - Myalgia [None]
  - Anxiety [None]
  - Confusional state [None]
  - Pain [None]
  - Vomiting [None]
  - Fall [None]
  - Pain in extremity [None]
  - Muscular weakness [None]
  - Discomfort [None]
  - Arthralgia [None]
  - Feeling abnormal [None]
  - Joint dislocation [None]
  - Malaise [None]
  - Joint instability [None]
  - Postprandial hypoglycaemia [None]
  - Fatigue [None]
  - Joint noise [None]

NARRATIVE: CASE EVENT DATE: 20180608
